FAERS Safety Report 13053222 (Version 1)
Quarter: 2016Q4

REPORT INFORMATION
  Report Type: Spontaneous
  Country: US (occurrence: US)
  Receive Date: 20161221
  Receipt Date: 20161221
  Transmission Date: 20170207
  Serious: Yes (Hospitalization)
  Sender: FDA-Public Use
  Company Number: None

PATIENT
  Age: 62 Year
  Sex: Female
  Weight: 112.5 kg

DRUGS (2)
  1. CARBOPLATIN. [Suspect]
     Active Substance: CARBOPLATIN
     Dates: end: 20121203
  2. TAXOL [Suspect]
     Active Substance: PACLITAXEL
     Dates: end: 20121203

REACTIONS (1)
  - Systemic inflammatory response syndrome [None]

NARRATIVE: CASE EVENT DATE: 20150907
